FAERS Safety Report 22108810 (Version 1)
Quarter: 2023Q1

REPORT INFORMATION
  Report Type: Spontaneous
  Country: US (occurrence: US)
  Receive Date: 20230317
  Receipt Date: 20230317
  Transmission Date: 20230418
  Serious: Yes (Other)
  Sender: FDA-Public Use
  Company Number: US-BAYER-2023A033075

PATIENT
  Age: 34 Year
  Sex: Female

DRUGS (1)
  1. SKYLA [Suspect]
     Active Substance: LEVONORGESTREL
     Indication: Contraception
     Dosage: 14?G/DAY
     Route: 015
     Dates: start: 202104, end: 20210825

REACTIONS (4)
  - Syncope [None]
  - Genital haemorrhage [None]
  - Abdominal pain lower [None]
  - Nausea [None]

NARRATIVE: CASE EVENT DATE: 20210101
